FAERS Safety Report 8412994-8 (Version None)
Quarter: 2012Q2

REPORT INFORMATION
  Report Type: 
  Country: None (occurrence: None)
  Receive Date: 20120323
  Receipt Date: 20110207
  Transmission Date: 20120825
  Serious: Yes (Hospitalization)
  Sender: FDA-Public Use
  Company Number: 163-21880-11021051

PATIENT
  Age: 62 Year
  Sex: Male

DRUGS (8)
  1. ACYCLOVIR [Concomitant]
  2. VORICONAZOLE (VORIXONAZOLE) [Concomitant]
  3. SENNA (SENNA) [Concomitant]
  4. BENADRYL [Concomitant]
  5. LIDOCAINE [Concomitant]
  6. MIRALAX [Concomitant]
  7. REVLIMID [Suspect]
     Indication: ACUTE MYELOID LEUKAEMIA
     Dosage: 15 MG, OD, PO
     Route: 048
     Dates: start: 20110106, end: 20110121
  8. HYDROCHLOROTHIAZIDE [Concomitant]

REACTIONS (2)
  - RASH [None]
  - SEPSIS [None]
